FAERS Safety Report 18595126 (Version 1)
Quarter: 2020Q4

REPORT INFORMATION
  Report Type: Spontaneous
  Country: CN (occurrence: CN)
  Receive Date: 20201209
  Receipt Date: 20201209
  Transmission Date: 20210114
  Serious: Yes (Hospitalization, Other)
  Sender: FDA-Public Use
  Company Number: CN-PFIZER INC-2020483650

PATIENT
  Age: 56 Year
  Sex: Male

DRUGS (2)
  1. DIFLUCAN [Suspect]
     Active Substance: FLUCONAZOLE
     Indication: PNEUMONIA CRYPTOCOCCAL
     Dosage: 400 MG, 1X/DAY
     Route: 048
     Dates: start: 20200211, end: 20200831
  2. DIFLUCAN [Suspect]
     Active Substance: FLUCONAZOLE
     Dosage: 600 MG, 1X/DAY
     Route: 048
     Dates: start: 20200901

REACTIONS (3)
  - Hallucination, auditory [Unknown]
  - Dizziness [Unknown]
  - Condition aggravated [Unknown]

NARRATIVE: CASE EVENT DATE: 2020
